FAERS Safety Report 13380733 (Version 1)
Quarter: 2017Q1

REPORT INFORMATION
  Report Type: Spontaneous
  Country: US (occurrence: US)
  Receive Date: 20170329
  Receipt Date: 20170329
  Transmission Date: 20170429
  Serious: No
  Sender: FDA-Public Use
  Company Number: US-B.I. PHARMACEUTICALS,INC./RIDGEFIELD-2017-BI-017383

PATIENT
  Sex: Male

DRUGS (1)
  1. FLOMAX [Suspect]
     Active Substance: TAMSULOSIN HYDROCHLORIDE
     Indication: PROSTATOMEGALY
     Dosage: 1 TABLET 1 TIME DAILY;  FORM STRENGTH: 0.4 MG; FORMULATION: CAPSULE? ADMINISTRATION CORRECT? YES ?AC
     Route: 048

REACTIONS (2)
  - Loose tooth [Not Recovered/Not Resolved]
  - Tooth abscess [Not Recovered/Not Resolved]

NARRATIVE: CASE EVENT DATE: 2015
